FAERS Safety Report 6091717-4 (Version None)
Quarter: 2009Q1

REPORT INFORMATION
  Report Type: 
  Country: None (occurrence: None)
  Receive Date: 20090225
  Receipt Date: 20080424
  Transmission Date: 20090719
  Serious: No
  Sender: FDA-Public Use
  Company Number: A0724546A

PATIENT
  Age: 67 Year
  Sex: Female

DRUGS (5)
  1. VALTREX [Suspect]
     Indication: GENITAL HERPES
     Dosage: 50MG VARIABLE DOSE
     Route: 048
     Dates: start: 20061101
  2. ZOCOR [Concomitant]
  3. BENICAR [Concomitant]
  4. TOPROL-XL [Concomitant]
  5. PRILOSEC [Concomitant]

REACTIONS (4)
  - BLOOD CREATININE INCREASED [None]
  - BLOOD SODIUM INCREASED [None]
  - BLOOD URIC ACID INCREASED [None]
  - CARBON DIOXIDE INCREASED [None]
